FAERS Safety Report 6983644-2 (Version None)
Quarter: 2010Q3

REPORT INFORMATION
  Report Type: 
  Country: None (occurrence: None)
  Receive Date: 20100914
  Receipt Date: 20081111
  Transmission Date: 20110219
  Serious: No
  Sender: FDA-Public Use
  Company Number: US-WYE-H06818808

PATIENT
  Sex: Female

DRUGS (2)
  1. IBUPROFEN [Suspect]
     Indication: MUSCULOSKELETAL PAIN
     Route: 048
     Dates: start: 20080801
  2. FLECTOR [Suspect]
     Indication: MUSCULOSKELETAL PAIN
     Route: 061
     Dates: start: 20080801, end: 20080801

REACTIONS (2)
  - NEURALGIA [None]
  - URTICARIA [None]
